FAERS Safety Report 11714807 (Version 1)
Quarter: 2015Q4

REPORT INFORMATION
  Report Type: Spontaneous
  Country: IN (occurrence: IN)
  Receive Date: 20151109
  Receipt Date: 20151109
  Transmission Date: 20160304
  Serious: Yes (Other)
  Sender: FDA-Public Use
  Company Number: IN-AKORN PHARMACEUTICALS-2015AKN00624

PATIENT
  Age: 45 Year
  Sex: Male

DRUGS (6)
  1. ETHAMBUTOL [Suspect]
     Active Substance: ETHAMBUTOL HYDROCHLORIDE
     Indication: TUBERCULOSIS
     Dosage: 800 MG, 1X/DAY
     Route: 065
  2. CYCLOSERINE. [Concomitant]
     Active Substance: CYCLOSERINE
     Dosage: 500 MG, 1X/DAY
  3. ETHIONAMIDE [Concomitant]
     Active Substance: ETHIONAMIDE
     Dosage: 500 MG, 1X/DAY
  4. KANAMYCIN [Concomitant]
     Active Substance: KANAMYCIN\KANAMYCIN A SULFATE
     Dosage: 750 MG, 1X/DAY
  5. LINEZOLID. [Suspect]
     Active Substance: LINEZOLID
     Indication: TUBERCULOSIS
     Dosage: 600 MG, 1X/DAY
     Route: 065
  6. MOXIFLOXACIN. [Concomitant]
     Active Substance: MOXIFLOXACIN
     Dosage: 400 MG, 1X/DAY

REACTIONS (2)
  - Toxic optic neuropathy [Recovering/Resolving]
  - Potentiating drug interaction [Recovered/Resolved]
